FAERS Safety Report 23436754 (Version 3)
Quarter: 2024Q1

REPORT INFORMATION
  Report Type: Spontaneous
  Country: IL (occurrence: IL)
  Receive Date: 20240124
  Receipt Date: 20240207
  Transmission Date: 20240410
  Serious: Yes (Hospitalization)
  Sender: FDA-Public Use
  Company Number: IL-AstraZeneca-2024-120320

PATIENT
  Age: 3 Month
  Sex: Female
  Weight: 1.5 kg

DRUGS (1)
  1. SYNAGIS [Suspect]
     Active Substance: PALIVIZUMAB
     Indication: Product used for unknown indication
     Route: 030

REACTIONS (3)
  - Respiratory syncytial virus infection [Unknown]
  - Pneumonia [Unknown]
  - Bronchiolitis [Unknown]
